FAERS Safety Report 25410153 (Version 2)
Quarter: 2025Q3

REPORT INFORMATION
  Report Type: Spontaneous
  Country: US (occurrence: US)
  Receive Date: 20250607
  Receipt Date: 20250811
  Transmission Date: 20251020
  Serious: No
  Sender: SANOFI AVENTIS
  Company Number: US-SA-2025SA161111

PATIENT
  Sex: Female
  Weight: 24.55 kg

DRUGS (1)
  1. DUPIXENT [Suspect]
     Active Substance: DUPILUMAB
     Indication: Dermatitis atopic
     Dosage: 300 MG, Q4W
     Route: 058

REACTIONS (3)
  - Lacrimation increased [Recovering/Resolving]
  - Eye swelling [Recovering/Resolving]
  - Dermatitis atopic [Unknown]
